FAERS Safety Report 8969372 (Version 2)
Quarter: 2013Q2

REPORT INFORMATION
  Report Type: Spontaneous
  Country: CA (occurrence: CA)
  Receive Date: 20121218
  Receipt Date: 20130419
  Transmission Date: 20140414
  Serious: Yes (Hospitalization, Other)
  Sender: FDA-Public Use
  Company Number: CA-ABBOTT-12P-028-1022284-00

PATIENT
  Age: 26 Year
  Sex: Female
  Weight: 49.94 kg

DRUGS (3)
  1. BIAXIN [Suspect]
     Indication: NASOPHARYNGITIS
     Route: 048
     Dates: start: 20111211, end: 20111218
  2. BIAXIN [Suspect]
     Indication: LOWER RESPIRATORY TRACT INFECTION
  3. DIANE [Concomitant]
     Indication: CONTRACEPTION

REACTIONS (9)
  - Chest discomfort [Unknown]
  - Anxiety disorder [Unknown]
  - Dizziness [Unknown]
  - Dyspnoea [Unknown]
  - Insomnia [Unknown]
  - Paranoia [Unknown]
  - Parosmia [Unknown]
  - Social avoidant behaviour [Unknown]
  - Thinking abnormal [Unknown]
